FAERS Safety Report 5163850-2 (Version None)
Quarter: 2006Q4

REPORT INFORMATION
  Report Type: 
  Country: None (occurrence: None)
  Receive Date: 20061124
  Receipt Date: 20061110
  Transmission Date: 20070319
  Serious: Yes (Other)
  Sender: FDA-Public Use
  Company Number: 2006094397

PATIENT
  Age: 82 Year
  Sex: Female

DRUGS (10)
  1. NEURONTIN [Suspect]
     Indication: EPILEPSY
     Dosage: 300 MG (100 MG, 3 IN 1 D)
  2. GABAPENTIN [Concomitant]
  3. PROPAFENONE HCL [Concomitant]
  4. ASPIRIN [Concomitant]
  5. LISINOPRIL [Concomitant]
  6. DIGOXIN [Concomitant]
  7. CARDIZEM [Concomitant]
  8. LIBRIUM [Concomitant]
  9. TAGRETOL (CARBAMAZEPINE) [Concomitant]
  10. PROCARDIA [Concomitant]

REACTIONS (5)
  - AMNESIA [None]
  - BURNS THIRD DEGREE [None]
  - COMPLEX PARTIAL SEIZURES [None]
  - PHARMACEUTICAL PRODUCT COMPLAINT [None]
  - POOR QUALITY DRUG ADMINISTERED [None]
